FAERS Safety Report 10241701 (Version 2)
Quarter: 2014Q2

REPORT INFORMATION
  Report Type: Spontaneous
  Country: US (occurrence: US)
  Receive Date: 20140617
  Receipt Date: 20140618
  Transmission Date: 20141212
  Serious: No
  Sender: FDA-Public Use
  Company Number: US-009507513-1405USA013552

PATIENT
  Sex: Male

DRUGS (1)
  1. COPPERTONE ULTRAGUARD LOTION SPF 50 [Suspect]
     Indication: PRODUCT USED FOR UNKNOWN INDICATION
     Dosage: UNK, UNKNOWN
     Route: 061

REACTIONS (4)
  - Blister [Unknown]
  - Blood blister [Unknown]
  - Sunburn [Unknown]
  - Burning sensation [Unknown]
